FAERS Safety Report 10384890 (Version 1)
Quarter: 2014Q3

REPORT INFORMATION
  Report Type: Spontaneous
  Country: US (occurrence: None)
  Receive Date: 20140813
  Receipt Date: 20140813
  Transmission Date: 20150326
  Serious: Yes (Hospitalization)
  Sender: FDA-Public Use
  Company Number: None

PATIENT
  Age: 16 Year
  Sex: Female
  Weight: 61.24 kg

DRUGS (1)
  1. TETRACYCLINE [Suspect]
     Active Substance: TETRACYCLINE
     Indication: ACNE

REACTIONS (5)
  - Migraine [None]
  - Weight decreased [None]
  - Malaise [None]
  - Benign intracranial hypertension [None]
  - Diplopia [None]

NARRATIVE: CASE EVENT DATE: 20080213
